FAERS Safety Report 17406016 (Version 1)
Quarter: 2020Q1

REPORT INFORMATION
  Report Type: Spontaneous
  Country: US (occurrence: US)
  Receive Date: 20200212
  Receipt Date: 20200212
  Transmission Date: 20200409
  Serious: No
  Sender: FDA-Public Use
  Company Number: US-ALLERGAN-1953084US

PATIENT
  Sex: Male

DRUGS (1)
  1. TAZORAC [Suspect]
     Active Substance: TAZAROTENE
     Indication: ACNE
     Dosage: 0.1 %, QPM
     Route: 061
     Dates: start: 201912

REACTIONS (2)
  - Product packaging issue [Unknown]
  - Off label use [Unknown]
